FAERS Safety Report 8089536-2 (Version None)
Quarter: 2012Q1

REPORT INFORMATION
  Report Type: 
  Country: None (occurrence: None)
  Receive Date: 20120128
  Receipt Date: 20110616
  Transmission Date: 20120608
  Serious: No
  Sender: FDA-Public Use
  Company Number: US-ABBOTT-11P-163-0733197-00

PATIENT
  Age: 27 Year
  Sex: Male

DRUGS (2)
  1. HUMIRA [Suspect]
     Indication: PSORIASIS
     Dates: start: 20110301, end: 20110527
  2. STEROID [Concomitant]
     Indication: PSORIASIS
     Route: 061

REACTIONS (3)
  - DRUG EFFECT DECREASED [None]
  - STREPTOCOCCUS TEST POSITIVE [None]
  - HYPOAESTHESIA [None]
